FAERS Safety Report 4964321-6 (Version None)
Quarter: 2006Q1

REPORT INFORMATION
  Report Type: 
  Country: None (occurrence: None)
  Receive Date: 20060331
  Receipt Date: 20060323
  Transmission Date: 20060701
  Serious: Yes (Other)
  Sender: FDA-Public Use
  Company Number: 231256K06USA

PATIENT
  Age: 30 Year
  Sex: Male

DRUGS (4)
  1. REBIF [Suspect]
     Indication: MULTIPLE SCLEROSIS
     Dosage: 22 MCG, 3 IN 1 WEEKS, SUBCUTANEOUS
     Route: 058
     Dates: start: 20060224
  2. DEPAKOTE [Concomitant]
  3. KEPPRA [Concomitant]
  4. ZONEGRAN [Concomitant]

REACTIONS (8)
  - CONVULSION [None]
  - DIFFICULTY IN WALKING [None]
  - DRUG PRESCRIBING ERROR [None]
  - HYPOAESTHESIA [None]
  - LABELLED DRUG-DRUG INTERACTION MEDICATION ERROR [None]
  - MONOPLEGIA [None]
  - PYREXIA [None]
  - VISION BLURRED [None]
